FAERS Safety Report 5158078-6 (Version None)
Quarter: 2006Q4

REPORT INFORMATION
  Report Type: 
  Country: None (occurrence: None)
  Receive Date: 20061113
  Receipt Date: 20061101
  Transmission Date: 20070319
  Serious: Yes (Hospitalization)
  Sender: FDA-Public Use
  Company Number: 200610131BBE

PATIENT
  Age: 64 Year
  Sex: Female
  Weight: 55 kg

DRUGS (7)
  1. GAMUNEX [Suspect]
     Indication: THROMBOCYTOPENIA
     Dosage: SEE IMAGE
     Route: 042
     Dates: start: 20060227
  2. GMUNEX [Suspect]
  3. SYNTHROID [Concomitant]
  4. DIPHENHYDRAMINE HCL [Concomitant]
  5. HYDROCORTISONE [Concomitant]
  6. PROZAC [Concomitant]
  7. CLONAZEPAM [Concomitant]

REACTIONS (3)
  - ADRENAL CORTICAL INSUFFICIENCY [None]
  - HYPOTENSION [None]
  - MENINGITIS ASEPTIC [None]
